FAERS Safety Report 24438530 (Version 2)
Quarter: 2024Q4

REPORT INFORMATION
  Report Type: Spontaneous
  Country: CN (occurrence: CN)
  Receive Date: 20241015
  Receipt Date: 20241016
  Transmission Date: 20250115
  Serious: Yes (Hospitalization, Other)
  Sender: PFIZER
  Company Number: CN-MLMSERVICE-20241003-PI217215-00271-1

PATIENT
  Age: 56 Year
  Sex: Male

DRUGS (4)
  1. METHYLPREDNISOLONE [Suspect]
     Active Substance: METHYLPREDNISOLONE
     Indication: Acute kidney injury
     Dosage: 60 MG, 2X/DAY, SLOWLY TAPERED IN TANDEM
     Dates: start: 2023, end: 2023
  2. METHYLPREDNISOLONE [Suspect]
     Active Substance: METHYLPREDNISOLONE
     Indication: Immune-mediated renal disorder
  3. PREDNISONE [Suspect]
     Active Substance: PREDNISONE
     Indication: Acute kidney injury
     Dosage: 10 MG, 1X/DAY, EQUIVALENT TO 8 MG OF METHYLPREDNISOLONE
     Dates: start: 202308
  4. PREDNISONE [Suspect]
     Active Substance: PREDNISONE
     Indication: Immune-mediated renal disorder

REACTIONS (4)
  - Pneumocystis jirovecii pneumonia [Recovered/Resolved]
  - Pneumothorax spontaneous [Recovered/Resolved]
  - Pneumonia cytomegaloviral [Recovered/Resolved]
  - Pneumonia herpes viral [Recovered/Resolved]

NARRATIVE: CASE EVENT DATE: 20230801
